FAERS Safety Report 14056384 (Version 2)
Quarter: 2017Q4

REPORT INFORMATION
  Report Type: Spontaneous
  Country: US (occurrence: US)
  Receive Date: 20171006
  Receipt Date: 20171117
  Transmission Date: 20180321
  Serious: No
  Sender: FDA-Public Use
  Company Number: PHEH2017US031120

PATIENT
  Age: 44 Year
  Sex: Female

DRUGS (3)
  1. VIVELLE-DOT [Suspect]
     Active Substance: ESTRADIOL
     Dosage: 0.75 MG, UNK
     Route: 062
  2. VIVELLE-DOT [Suspect]
     Active Substance: ESTRADIOL
     Dosage: 0.01 MG, UNK
     Route: 062
  3. VIVELLE-DOT [Suspect]
     Active Substance: ESTRADIOL
     Indication: PRODUCT USED FOR UNKNOWN INDICATION
     Dosage: 0.01 MG, QW2
     Route: 062

REACTIONS (5)
  - Night sweats [Unknown]
  - Hyperhidrosis [Unknown]
  - Product quality issue [Unknown]
  - Hot flush [Unknown]
  - Anxiety [Unknown]

NARRATIVE: CASE EVENT DATE: 201610
